FAERS Safety Report 10050688 (Version 1)
Quarter: 2014Q2

REPORT INFORMATION
  Report Type: Spontaneous
  Country: NO (occurrence: NO)
  Receive Date: 20140401
  Receipt Date: 20140401
  Transmission Date: 20141212
  Serious: Yes (Other)
  Sender: FDA-Public Use
  Company Number: NO-JNJFOC-20140315692

PATIENT
  Sex: 0

DRUGS (8)
  1. DOXORUBICIN HYDROCHLORIDE [Suspect]
     Indication: OSTEOSARCOMA
     Route: 042
  2. DOXORUBICIN HYDROCHLORIDE [Suspect]
     Indication: OSTEOSARCOMA
     Route: 042
  3. METHOTREXATE [Suspect]
     Indication: OSTEOSARCOMA
     Route: 065
  4. CISPLATIN [Suspect]
     Indication: OSTEOSARCOMA
     Route: 065
  5. IFOSFAMIDE [Suspect]
     Indication: OSTEOSARCOMA
     Route: 065
  6. CYCLOPHOSPHAMIDE [Suspect]
     Indication: OSTEOSARCOMA
     Route: 065
  7. ETOPOSIDE [Suspect]
     Indication: OSTEOSARCOMA
     Route: 065
  8. LEUCOVORIN [Concomitant]
     Indication: PROPHYLAXIS
     Route: 065

REACTIONS (2)
  - Ototoxicity [Unknown]
  - Off label use [Unknown]
